FAERS Safety Report 21923659 (Version 5)
Quarter: 2025Q2

REPORT INFORMATION
  Report Type: Spontaneous
  Country: US (occurrence: US)
  Receive Date: 20230130
  Receipt Date: 20250514
  Transmission Date: 20250717
  Serious: No
  Sender: SANOFI AVENTIS
  Company Number: US-SA-SAC20230124001384

PATIENT
  Age: 14 Year
  Sex: Female
  Weight: 81.2 kg

DRUGS (5)
  1. FABRAZYME [Suspect]
     Active Substance: AGALSIDASE BETA
     Indication: Fabry^s disease
     Dosage: 1 MG/KG, QOW
     Route: 042
     Dates: start: 20201028
  2. FABRAZYME [Suspect]
     Active Substance: AGALSIDASE BETA
     Dosage: 1 MG/KG, QOW
     Route: 042
     Dates: start: 20200916
  3. SODIUM CHLORIDE [Concomitant]
     Active Substance: SODIUM CHLORIDE
  4. STERILE WATER [Concomitant]
     Active Substance: WATER
  5. SODIUM CHLORIDE [Concomitant]
     Active Substance: SODIUM CHLORIDE

REACTIONS (12)
  - Weight fluctuation [Unknown]
  - Influenza [Unknown]
  - Decreased appetite [Unknown]
  - Weight decreased [Unknown]
  - Bowel movement irregularity [Unknown]
  - Lysosomal storage disorder [Unknown]
  - Malaise [Unknown]
  - Fabry^s disease [Unknown]
  - Condition aggravated [Unknown]
  - Burning sensation [Not Recovered/Not Resolved]
  - Abdominal pain upper [Unknown]
  - Paraesthesia [Not Recovered/Not Resolved]

NARRATIVE: CASE EVENT DATE: 20250101
